FAERS Safety Report 5090058-1 (Version None)
Quarter: 2006Q3

REPORT INFORMATION
  Report Type: 
  Country: None (occurrence: None)
  Receive Date: 20060828
  Receipt Date: 20060821
  Transmission Date: 20061208
  Serious: Yes (Other)
  Sender: FDA-Public Use
  Company Number: PHFR2006GB02636

PATIENT

DRUGS (3)
  1. ZOMETA [Suspect]
     Indication: BREAST CANCER
     Route: 065
  2. IBANDRONATE SODIUM [Suspect]
     Route: 065
  3. PAMIDRONATE DISODIUM [Suspect]
     Route: 065

REACTIONS (1)
  - OSTEONECROSIS [None]
